FAERS Safety Report 5723559-0 (Version None)
Quarter: 2008Q2

REPORT INFORMATION
  Report Type: 
  Country: None (occurrence: None)
  Receive Date: 20080430
  Receipt Date: 20080424
  Transmission Date: 20081010
  Serious: Yes (Other)
  Sender: FDA-Public Use
  Company Number: B0511506A

PATIENT
  Age: 14 Month
  Sex: Male
  Weight: 8.9 kg

DRUGS (5)
  1. ZIDOVUDINE [Suspect]
     Indication: HIV INFECTION
     Dosage: 70MG TWICE PER DAY
     Route: 048
     Dates: start: 20070717
  2. LAMIVUDINE [Suspect]
     Indication: HIV INFECTION
     Dosage: 30MG TWICE PER DAY
     Route: 048
     Dates: start: 20070717
  3. KALETRA [Suspect]
     Indication: HIV INFECTION
     Dosage: 120MG TWICE PER DAY
     Route: 048
     Dates: start: 20070717
  4. BLINDED TRIAL MEDICATION [Suspect]
     Indication: DRUG USE FOR UNKNOWN INDICATION
     Dosage: 100MG PER DAY
     Route: 048
     Dates: start: 20070327, end: 20080214
  5. BACTRIM [Suspect]
     Indication: DRUG USE FOR UNKNOWN INDICATION
     Dosage: 48MG PER DAY
     Route: 048
     Dates: start: 20070327

REACTIONS (1)
  - NEUTROPENIA [None]
